FAERS Safety Report 26142699 (Version 1)
Quarter: 2025Q4

REPORT INFORMATION
  Report Type: Spontaneous
  Country: US (occurrence: US)
  Receive Date: 20251211
  Receipt Date: 20251211
  Transmission Date: 20260117
  Serious: No
  Sender: ROCHE
  Company Number: US-ROCHE-10000454377

PATIENT
  Sex: Female

DRUGS (2)
  1. AVASTIN [Suspect]
     Active Substance: BEVACIZUMAB
     Indication: Product used for unknown indication
  2. FOTIVDA [Concomitant]
     Active Substance: TIVOZANIB HYDROCHLORIDE
     Indication: Product used for unknown indication

REACTIONS (8)
  - Arthralgia [Unknown]
  - Chest pain [Unknown]
  - Headache [Recovered/Resolved]
  - Asthenia [Unknown]
  - Vomiting [Unknown]
  - Diarrhoea [Unknown]
  - Arthralgia [Unknown]
  - Asthenia [Unknown]
